FAERS Safety Report 17062529 (Version 1)
Quarter: 2019Q4

REPORT INFORMATION
  Report Type: Spontaneous
  Country: GB (occurrence: GB)
  Receive Date: 20191122
  Receipt Date: 20191122
  Transmission Date: 20200122
  Serious: Yes (Other)
  Sender: FDA-Public Use
  Company Number: GB-TEVA-2018-GB-925190

PATIENT
  Age: 71 Year
  Sex: Male
  Weight: 108.5 kg

DRUGS (21)
  1. RAMIPRIL. [Concomitant]
     Active Substance: RAMIPRIL
     Dosage: 5 MILLIGRAM DAILY; AT NIGHT, 5 MG/ DAY
     Route: 065
     Dates: start: 20180322
  2. COCODAMOL [Concomitant]
     Active Substance: ACETAMINOPHEN\CODEINE PHOSPHATE
     Dosage: 1-2 UP TO 4 TIMES DAILY.
     Route: 065
     Dates: start: 20180510
  3. METFORMIN [Concomitant]
     Active Substance: METFORMIN HYDROCHLORIDE
     Dosage: 1500MG/ DAY
     Route: 065
     Dates: start: 20180411, end: 20180522
  4. DULOXETINE. [Concomitant]
     Active Substance: DULOXETINE
     Dosage: 40 MILLIGRAM DAILY; 40MG/ DAY
     Dates: start: 20180322
  5. ORAMORPH [Concomitant]
     Active Substance: MORPHINE SULFATE
     Dosage: 4 HOURLY MAXIMUM UP TO FOUR TIMES DAILY. 10MG/5ML.
     Route: 048
     Dates: start: 20180322
  6. WARFARIN [Concomitant]
     Active Substance: WARFARIN
     Dosage: REFER TO YELLOW BOOK FOR DOSAGE INSTRUCTIONS, 5MG/ 60 DAYS
     Dates: start: 20180323, end: 20180522
  7. FUROSEMIDE. [Concomitant]
     Active Substance: FUROSEMIDE
     Dosage: 80 MILLIGRAM DAILY; IN THE MORNING AND MIDDAY, 80MG/ DAY
     Route: 065
     Dates: start: 20180322
  8. MST CONTINUS [Concomitant]
     Active Substance: MORPHINE SULFATE
     Dosage: 80 MILLIGRAM DAILY; AT 8AM AND 8PM, 40MG/ DAY
     Route: 065
     Dates: start: 20180425
  9. WARFARIN [Concomitant]
     Active Substance: WARFARIN
     Dosage: REFER TO YELLOW BOOK FOR DOSAGE INSTRUCTIONS, 3 MG
     Route: 065
     Dates: start: 20180323
  10. EPILIM [Concomitant]
     Active Substance: VALPROATE SODIUM
     Dosage: 400 MILLIGRAM DAILY; AT NIGHT.
     Route: 065
     Dates: start: 20180322
  11. EPILIM [Concomitant]
     Active Substance: VALPROATE SODIUM
     Dosage: 1000 MILLIGRAM DAILY; AT NIGHT, 1000MG / DAY
     Route: 065
     Dates: start: 20180322
  12. LANSOPRAZOLE. [Concomitant]
     Active Substance: LANSOPRAZOLE
     Dosage: 30 MILLIGRAM DAILY; 1 DAILY, 30 MG
     Route: 065
     Dates: start: 20180322
  13. CLENIL MODULITE [Concomitant]
     Active Substance: BECLOMETHASONE DIPROPIONATE
     Dosage: 400 MICROGRAM DAILY; 400MCG/ DAY
     Route: 055
     Dates: start: 20180322
  14. VENTOLIN [Concomitant]
     Active Substance: ALBUTEROL SULFATE
     Dosage: 1-2 PUFFS UP TO 4 TIMES DAILY.
     Route: 055
     Dates: start: 20180322
  15. METFORMIN [Concomitant]
     Active Substance: METFORMIN HYDROCHLORIDE
     Dosage: 1000 MILLIGRAM DAILY; 1000MG/ DAY
     Route: 065
     Dates: start: 20180322, end: 20180411
  16. COCODAMOL [Concomitant]
     Active Substance: ACETAMINOPHEN\CODEINE PHOSPHATE
     Dosage: TAKE 2 UP TO 4 TIMES DAILY. 30MG/500MG
     Route: 065
     Dates: start: 20180322, end: 20180418
  17. MST CONTINUS [Concomitant]
     Active Substance: MORPHINE SULFATE
     Dosage: 20 MILLIGRAM DAILY; 20MG/ DAY
     Route: 065
     Dates: start: 20180322
  18. TEMAZEPAM. [Suspect]
     Active Substance: TEMAZEPAM
     Dosage: 20MG
     Route: 048
  19. FLUCONAZOLE. [Concomitant]
     Active Substance: FLUCONAZOLE
     Dosage: IMMEDIATELY.
     Route: 065
     Dates: start: 20180425
  20. CLOTRIMAZOLE. [Concomitant]
     Active Substance: CLOTRIMAZOLE
     Dosage: TWO TO THREE TIMES DAILY.
     Route: 061
     Dates: start: 20180425
  21. ROSUVASTATIN. [Concomitant]
     Active Substance: ROSUVASTATIN
     Dosage: 10 MILLIGRAM DAILY; AT NIGHT, 10 MG/ DAY
     Route: 065
     Dates: start: 20180322

REACTIONS (1)
  - Syncope [Recovering/Resolving]
